FAERS Safety Report 20154436 (Version 5)
Quarter: 2024Q2

REPORT INFORMATION
  Report Type: Spontaneous
  Country: IE (occurrence: IE)
  Receive Date: 20211207
  Receipt Date: 20240604
  Transmission Date: 20240715
  Serious: Yes (Life-Threatening, Hospitalization, Disabling, Other)
  Sender: FDA-Public Use
  Company Number: IE-GSKCCFEMEA-Case-01365530_AE-52376

PATIENT

DRUGS (25)
  1. FLUTICASONE FUROATE [Suspect]
     Active Substance: FLUTICASONE FUROATE
     Indication: Pain
     Dosage: 27.5 MG, 120 DS
     Dates: start: 20201125
  2. FLUTICASONE FUROATE [Suspect]
     Active Substance: FLUTICASONE FUROATE
     Dosage: 27.5 MG, 120 DS
     Dates: start: 20210311
  3. FLUTICASONE FUROATE [Suspect]
     Active Substance: FLUTICASONE FUROATE
     Dosage: 27.5 MG, 120 DS
     Dates: start: 20210428, end: 20210816
  4. FLUTICASONE FUROATE [Suspect]
     Active Substance: FLUTICASONE FUROATE
     Dosage: 27.5 MG, 120 DS
     Dates: start: 20210604
  5. FLUTICASONE FUROATE [Suspect]
     Active Substance: FLUTICASONE FUROATE
     Dosage: 27.5 MG, 120 DS
     Dates: start: 20210630
  6. FLUTICASONE FUROATE [Suspect]
     Active Substance: FLUTICASONE FUROATE
     Dosage: 27.5 MG, 120 DS
     Dates: start: 20210126
  7. PREDNISOLONE [Suspect]
     Active Substance: PREDNISOLONE
     Indication: Product used for unknown indication
     Dosage: 6 DF, QD (IN MORNING)
     Route: 048
     Dates: start: 20210428
  8. PREDNISOLONE [Suspect]
     Active Substance: PREDNISOLONE
     Dosage: 30 MG, QD
     Route: 048
  9. METFORMIN [Suspect]
     Active Substance: METFORMIN HYDROCHLORIDE
     Indication: Type 2 diabetes mellitus
     Dosage: 500 MG, BID
  10. ACETAMINOPHEN\CAFFEINE\CODEINE PHOSPHATE [Suspect]
     Active Substance: ACETAMINOPHEN\CAFFEINE\CODEINE PHOSPHATE
     Indication: Pain
     Dosage: UNK, TAKE TWO THREE TIMES DAILY, AS NEEDED
     Route: 048
     Dates: start: 20201125
  11. ACETAMINOPHEN\CAFFEINE\CODEINE PHOSPHATE [Suspect]
     Active Substance: ACETAMINOPHEN\CAFFEINE\CODEINE PHOSPHATE
     Dosage: UNK, TAKE TWO THREE TIMES DAILY, AS NEEDED
     Route: 048
     Dates: start: 20210217
  12. ACETAMINOPHEN\CAFFEINE\CODEINE PHOSPHATE [Suspect]
     Active Substance: ACETAMINOPHEN\CAFFEINE\CODEINE PHOSPHATE
     Dosage: UNK, TAKE TWO THREE TIMES DAILY, AS NEEDED
     Route: 048
     Dates: start: 20210311
  13. ACETAMINOPHEN\CAFFEINE\CODEINE PHOSPHATE [Suspect]
     Active Substance: ACETAMINOPHEN\CAFFEINE\CODEINE PHOSPHATE
     Dosage: UNK, TAKE TWO THREE TIMES DAILY, AS NEEDED
     Route: 048
     Dates: start: 20210408
  14. ACETAMINOPHEN\CAFFEINE\CODEINE PHOSPHATE [Suspect]
     Active Substance: ACETAMINOPHEN\CAFFEINE\CODEINE PHOSPHATE
     Dosage: UNK, TAKE TWO THREE TIMES DAILY, AS NEEDED
     Route: 048
     Dates: start: 20210706
  15. ACETAMINOPHEN\CAFFEINE\CODEINE PHOSPHATE [Suspect]
     Active Substance: ACETAMINOPHEN\CAFFEINE\CODEINE PHOSPHATE
     Dosage: UNK, TAKE TWO THREE TIMES DAILY, AS NEEDED
     Route: 048
     Dates: start: 20210828
  16. ACETAMINOPHEN\CAFFEINE\CODEINE PHOSPHATE [Suspect]
     Active Substance: ACETAMINOPHEN\CAFFEINE\CODEINE PHOSPHATE
     Dosage: UNK, TAKE TWO THREE TIMES DAILY, AS NEEDED
     Route: 048
     Dates: start: 20211001
  17. ASTILIN [Concomitant]
     Indication: Product used for unknown indication
     Dosage: 100 MG, QD
  18. DIFENE [Concomitant]
     Active Substance: DICLOFENAC SODIUM
     Indication: Product used for unknown indication
     Dosage: UNK,BID
  19. Anxicalm [Concomitant]
     Indication: Product used for unknown indication
     Dosage: 2 MG,UNK,AS NEEDED,TAKE ONE DAILY
  20. DIAZEPAM [Concomitant]
     Active Substance: DIAZEPAM
     Indication: Product used for unknown indication
     Dosage: UNK,AS NEEDED,TAKE ONE DAILY
  21. DEXKETOPROFEN TROMETAMOL [Concomitant]
     Active Substance: DEXKETOPROFEN TROMETAMOL
     Indication: Product used for unknown indication
     Dosage: 25 MG, TID, FOR 5 DAYS
  22. DOXYCYCLINE PINEWOOD [Concomitant]
     Indication: Product used for unknown indication
     Dosage: 100 MG, BID
  23. DOXYCYCLINE PINEWOOD [Concomitant]
     Dosage: 100 MG, QD
  24. AMITRIPTYLINE [Concomitant]
     Active Substance: AMITRIPTYLINE
     Indication: Product used for unknown indication
     Dosage: 10 MG, QD
  25. DICLOFENAC SODIUM [Concomitant]
     Active Substance: DICLOFENAC\DICLOFENAC SODIUM
     Indication: Product used for unknown indication
     Dosage: 75 MG, BID,PRN

REACTIONS (11)
  - Type 2 diabetes mellitus [Not Recovered/Not Resolved]
  - Blood glucose increased [Unknown]
  - Malaise [Unknown]
  - Polydipsia [Unknown]
  - Food craving [Unknown]
  - Feeling hot [Unknown]
  - Hyperhidrosis [Unknown]
  - Paraesthesia [Unknown]
  - Nausea [Unknown]
  - Fungal infection [Unknown]
  - Drug ineffective [Unknown]

NARRATIVE: CASE EVENT DATE: 20210801
